FAERS Safety Report 7993555-1 (Version None)
Quarter: 2011Q4

REPORT INFORMATION
  Report Type: 
  Country: None (occurrence: None)
  Receive Date: 20111219
  Receipt Date: 20111215
  Transmission Date: 20120403
  Serious: Yes (Life-Threatening)
  Sender: FDA-Public Use
  Company Number: DE-ASTRAZENECA-2011SE75783

PATIENT
  Sex: Female

DRUGS (2)
  1. SEROQUEL [Suspect]
     Route: 048
     Dates: start: 20111204, end: 20111214
  2. MIRTAZAPINE [Concomitant]

REACTIONS (3)
  - CARDIAC ARREST [None]
  - THROMBOSIS [None]
  - PULMONARY EMBOLISM [None]
